FAERS Safety Report 8200023-0 (Version None)
Quarter: 2012Q1

REPORT INFORMATION
  Report Type: 
  Country: None (occurrence: None)
  Receive Date: 20120312
  Receipt Date: 20120308
  Transmission Date: 20120608
  Serious: No
  Sender: FDA-Public Use
  Company Number: US-PFIZER INC-2012062561

PATIENT
  Sex: Female
  Weight: 49.887 kg

DRUGS (3)
  1. TAPAZOLE [Suspect]
     Dosage: UNK
     Route: 048
     Dates: start: 20120301
  2. TAPAZOLE [Suspect]
     Indication: HYPERTHYROIDISM
     Dosage: 5 MG, 1X/DAY
     Route: 048
     Dates: start: 20120101, end: 20120305
  3. CHANTIX [Suspect]
     Indication: SMOKING CESSATION THERAPY
     Dosage: 0.5 MG, 1X/DAY
     Route: 048
     Dates: start: 20120201, end: 20120305

REACTIONS (1)
  - MALAISE [None]
